FAERS Safety Report 18476523 (Version 1)
Quarter: 2020Q4

REPORT INFORMATION
  Report Type: Report from Study
  Country: US (occurrence: US)
  Receive Date: 20201106
  Receipt Date: 20201106
  Transmission Date: 20210114
  Serious: Yes (Hospitalization)
  Sender: FDA-Public Use
  Company Number: US-SHIRE-US202012443

PATIENT
  Age: 76 Year
  Sex: Female

DRUGS (16)
  1. GATTEX [Suspect]
     Active Substance: TEDUGLUTIDE\WATER
     Dosage: 2.8 MILLIGRAM, 1X/DAY:QD
     Route: 058
     Dates: start: 201612
  2. GATTEX [Suspect]
     Active Substance: TEDUGLUTIDE\WATER
     Dosage: 0.05 MILLIGRAM/KILOGRAM
     Route: 058
     Dates: start: 201309
  3. GATTEX [Suspect]
     Active Substance: TEDUGLUTIDE\WATER
     Indication: SHORT-BOWEL SYNDROME
     Dosage: 2.8 MILLIGRAM, 1X/DAY:QD
     Route: 058
     Dates: start: 20161207
  4. GATTEX [Suspect]
     Active Substance: TEDUGLUTIDE\WATER
     Dosage: 2.8 MILLIGRAM, 1X/DAY:QD
     Route: 058
     Dates: start: 20161208
  5. GATTEX [Suspect]
     Active Substance: TEDUGLUTIDE\WATER
     Dosage: 0.05 MILLIGRAM/KILOGRAM
     Route: 058
     Dates: start: 201309
  6. GATTEX [Suspect]
     Active Substance: TEDUGLUTIDE\WATER
     Indication: SHORT-BOWEL SYNDROME
     Dosage: 2.8 MILLIGRAM, 1X/DAY:QD
     Route: 058
     Dates: start: 20161207
  7. GATTEX [Suspect]
     Active Substance: TEDUGLUTIDE\WATER
     Indication: SHORT-BOWEL SYNDROME
     Dosage: 2.8 MILLIGRAM, 1X/DAY:QD
     Route: 058
     Dates: start: 20161207
  8. GATTEX [Suspect]
     Active Substance: TEDUGLUTIDE\WATER
     Dosage: 2.8 MILLIGRAM, 1X/DAY:QD
     Route: 058
     Dates: start: 20161208
  9. GATTEX [Suspect]
     Active Substance: TEDUGLUTIDE\WATER
     Indication: SHORT-BOWEL SYNDROME
     Dosage: 2.8 MILLIGRAM, 1X/DAY:QD
     Route: 058
     Dates: start: 20161207
  10. GATTEX [Suspect]
     Active Substance: TEDUGLUTIDE\WATER
     Dosage: 2.8 MILLIGRAM, 1X/DAY:QD
     Route: 058
     Dates: start: 20161208
  11. GATTEX [Suspect]
     Active Substance: TEDUGLUTIDE\WATER
     Dosage: 2.8 MILLIGRAM, 1X/DAY:QD
     Route: 058
     Dates: start: 201612
  12. GATTEX [Suspect]
     Active Substance: TEDUGLUTIDE\WATER
     Dosage: 0.05 MILLIGRAM/KILOGRAM
     Route: 058
     Dates: start: 201309
  13. GATTEX [Suspect]
     Active Substance: TEDUGLUTIDE\WATER
     Dosage: 0.05 MILLIGRAM/KILOGRAM
     Route: 058
     Dates: start: 201309
  14. GATTEX [Suspect]
     Active Substance: TEDUGLUTIDE\WATER
     Dosage: 2.8 MILLIGRAM, 1X/DAY:QD
     Route: 058
     Dates: start: 20161208
  15. GATTEX [Suspect]
     Active Substance: TEDUGLUTIDE\WATER
     Dosage: 2.8 MILLIGRAM, 1X/DAY:QD
     Route: 058
     Dates: start: 201612
  16. GATTEX [Suspect]
     Active Substance: TEDUGLUTIDE\WATER
     Dosage: 2.8 MILLIGRAM, 1X/DAY:QD
     Route: 058
     Dates: start: 201612

REACTIONS (4)
  - Muscle tightness [Recovered/Resolved]
  - Dehydration [Recovered/Resolved]
  - Migraine [Recovered/Resolved]
  - Eye pain [Recovered/Resolved]

NARRATIVE: CASE EVENT DATE: 202003
